FAERS Safety Report 8901387 (Version 1)
Quarter: 2012Q4

REPORT INFORMATION
  Report Type: Report from Study
  Country: CA (occurrence: CA)
  Receive Date: 20121109
  Receipt Date: 20121109
  Transmission Date: 20130627
  Serious: Yes (Other)
  Sender: FDA-Public Use
  Company Number: CA-JNJFOC-20121101112

PATIENT
  Age: 75 Year
  Sex: Female
  Weight: 65.3 kg

DRUGS (8)
  1. REMICADE [Suspect]
     Indication: RHEUMATOID ARTHRITIS
     Route: 042
     Dates: start: 20060516
  2. METHOTREXATE [Concomitant]
     Route: 065
  3. PREDNISONE [Concomitant]
     Route: 065
  4. IMITREX [Concomitant]
     Route: 065
  5. COVERSYL [Concomitant]
     Route: 065
  6. ZOPICLONE [Concomitant]
     Route: 065
  7. NEXIUM [Concomitant]
     Route: 065
  8. CYCLOBENZAPRINE [Concomitant]
     Route: 065

REACTIONS (3)
  - Kidney infection [Recovered/Resolved]
  - Loss of consciousness [Recovered/Resolved]
  - Joint swelling [Not Recovered/Not Resolved]
